FAERS Safety Report 5742151-5 (Version None)
Quarter: 2008Q2

REPORT INFORMATION
  Report Type: 
  Country: None (occurrence: None)
  Receive Date: 20080514
  Receipt Date: 20080514
  Transmission Date: 20081010
  Serious: Yes (Other)
  Sender: FDA-Public Use
  Company Number: None

PATIENT
  Age: 61 Year
  Sex: Female

DRUGS (2)
  1. DIGITEK  0.125MG   AMIDE-BERTEK- [Suspect]
     Dosage: 0.125MG DAILY PO
     Route: 048
     Dates: start: 20080222, end: 20080424
  2. DIGITEK  0.125MG  AMIDE-BERTEK- [Suspect]
     Dosage: 0.125MG DAILY PO
     Route: 048
     Dates: start: 20080424, end: 20080509

REACTIONS (8)
  - CARDIAC FAILURE [None]
  - DIARRHOEA [None]
  - DIZZINESS [None]
  - FATIGUE [None]
  - FEELING ABNORMAL [None]
  - HEART RATE IRREGULAR [None]
  - NAUSEA [None]
  - VOMITING [None]
